FAERS Safety Report 8491440-2 (Version None)
Quarter: 2012Q2

REPORT INFORMATION
  Report Type: 
  Country: None (occurrence: None)
  Receive Date: 20120627
  Receipt Date: 20120613
  Transmission Date: 20120825
  Serious: Yes (Hospitalization)
  Sender: FDA-Public Use
  Company Number: JPI-P-021997

PATIENT
  Age: 64 Year
  Sex: Female
  Weight: 57.6068 kg

DRUGS (6)
  1. LEVOTHYROXINE SODIUM [Concomitant]
  2. PAROXETINE HYDROCHLORIDE [Concomitant]
  3. EST ESTROGESN-METHYLT-EST (TABLETS) [Concomitant]
  4. DILTIAZEM HCL (TABLETS) [Concomitant]
  5. XYREM [Suspect]
     Indication: NARCOLEPSY
     Dosage: 4.5 GM (2.25 GM, 2 IN 1 D), ORAL
     Route: 048
     Dates: start: 20090929
  6. FIRST-PROGESTERONE VGS 100 [Concomitant]

REACTIONS (2)
  - COLITIS [None]
  - MALAISE [None]
